FAERS Safety Report 20748381 (Version 1)
Quarter: 2022Q2

REPORT INFORMATION
  Report Type: Spontaneous
  Country: US (occurrence: US)
  Receive Date: 20220426
  Receipt Date: 20220426
  Transmission Date: 20220721
  Serious: No
  Sender: FDA-Public Use
  Company Number: US-ORGANON-O2204USA001752

PATIENT
  Sex: Female

DRUGS (1)
  1. NEXPLANON [Suspect]
     Active Substance: ETONOGESTREL
     Dosage: 1 IMPLANT , INSERTED IN JANUARY (YEAR NOT SPECIFIED)
     Route: 059

REACTIONS (2)
  - Palpitations [Unknown]
  - Mood swings [Unknown]
